FAERS Safety Report 23201959 (Version 1)
Quarter: 2023Q4

REPORT INFORMATION
  Report Type: Spontaneous
  Country: US (occurrence: None)
  Receive Date: 20231118
  Receipt Date: 20231118
  Transmission Date: 20240110
  Serious: Yes (Other)
  Sender: FDA-Public Use
  Company Number: None

PATIENT
  Age: 40 Year
  Sex: Female
  Weight: 91.35 kg

DRUGS (13)
  1. PHENTERMINE [Suspect]
     Active Substance: PHENTERMINE
     Indication: Weight decreased
     Dosage: 1 TABLET DAILY ORAL
     Route: 048
     Dates: start: 20230816
  2. ESCITALOPRAM [Concomitant]
     Active Substance: ESCITALOPRAM OXALATE
  3. BUPROPION [Concomitant]
     Active Substance: BUPROPION
  4. PANTOPRAZOLE [Concomitant]
     Active Substance: PANTOPRAZOLE
  5. LIOTHYRONINE [Concomitant]
     Active Substance: LIOTHYRONINE
  6. VENTOLIN [Concomitant]
     Active Substance: ALBUTEROL SULFATE
  7. PHENTERMINE [Concomitant]
     Active Substance: PHENTERMINE
  8. VITAMIN D3 [Concomitant]
     Active Substance: CHOLECALCIFEROL
  9. CALCIUM [Concomitant]
     Active Substance: CALCIUM
  10. MAGNESIUM [Concomitant]
     Active Substance: MAGNESIUM
  11. IRON [Concomitant]
     Active Substance: IRON
  12. FAMOTIDINE [Concomitant]
     Active Substance: FAMOTIDINE
  13. FEXOFENADINE [Concomitant]
     Active Substance: FEXOFENADINE HYDROCHLORIDE

REACTIONS (3)
  - Depression [None]
  - Loss of personal independence in daily activities [None]
  - Crying [None]

NARRATIVE: CASE EVENT DATE: 20231109
